FAERS Safety Report 7964151-7 (Version None)
Quarter: 2011Q4

REPORT INFORMATION
  Report Type: 
  Country: None (occurrence: None)
  Receive Date: 20111205
  Receipt Date: 20111118
  Transmission Date: 20120403
  Serious: Yes (Hospitalization, Other)
  Sender: FDA-Public Use
  Company Number: 2011AP002751

PATIENT
  Age: 50 Year
  Sex: Male

DRUGS (20)
  1. IMIPRAMINE [Concomitant]
  2. FLUOXETINE (FUOXETINE) [Concomitant]
  3. OLANZAPINE [Concomitant]
  4. EFFEXOR [Suspect]
     Indication: ANXIETY
     Dosage: 37.5 MG;QD 75 MG;QD 112.5 MG;QD 187.5 MG;QD
     Dates: start: 20080529, end: 20080605
  5. EFFEXOR [Suspect]
     Indication: DEPRESSION
     Dosage: 37.5 MG;QD 75 MG;QD 112.5 MG;QD 187.5 MG;QD
     Dates: start: 20080529, end: 20080605
  6. EFFEXOR [Suspect]
     Indication: ANXIETY
     Dosage: 37.5 MG;QD 75 MG;QD 112.5 MG;QD 187.5 MG;QD
     Dates: start: 20080421, end: 20080428
  7. EFFEXOR [Suspect]
     Indication: DEPRESSION
     Dosage: 37.5 MG;QD 75 MG;QD 112.5 MG;QD 187.5 MG;QD
     Dates: start: 20080421, end: 20080428
  8. EFFEXOR [Suspect]
     Indication: ANXIETY
     Dosage: 37.5 MG;QD 75 MG;QD 112.5 MG;QD 187.5 MG;QD
     Dates: start: 20080509, end: 20080528
  9. EFFEXOR [Suspect]
     Indication: DEPRESSION
     Dosage: 37.5 MG;QD 75 MG;QD 112.5 MG;QD 187.5 MG;QD
     Dates: start: 20080509, end: 20080528
  10. EFFEXOR [Suspect]
     Indication: ANXIETY
     Dosage: 37.5 MG;QD 75 MG;QD 112.5 MG;QD 187.5 MG;QD
     Dates: start: 20080429, end: 20080508
  11. EFFEXOR [Suspect]
     Indication: DEPRESSION
     Dosage: 37.5 MG;QD 75 MG;QD 112.5 MG;QD 187.5 MG;QD
     Dates: start: 20080429, end: 20080508
  12. CITALOPRAM HYDROBROMIDE [Suspect]
     Indication: ANXIETY
     Dosage: 20 MG;QD 40 MG , QD
     Dates: start: 20070101, end: 20080801
  13. CITALOPRAM HYDROBROMIDE [Suspect]
     Indication: DEPRESSION
     Dosage: 20 MG;QD 40 MG , QD
     Dates: start: 20070101, end: 20080801
  14. DIAZEPAM [Concomitant]
  15. EFFEXOR XR [Suspect]
     Indication: DEPRESSION
     Dosage: 225 MG;QD 75 MG;BID 75 MG;QD
     Dates: start: 20081107, end: 20081114
  16. EFFEXOR XR [Suspect]
     Indication: ANXIETY
     Dosage: 225 MG;QD 75 MG;BID 75 MG;QD
     Dates: start: 20081107, end: 20081114
  17. EFFEXOR XR [Suspect]
     Indication: DEPRESSION
     Dosage: 225 MG;QD 75 MG;BID 75 MG;QD
     Dates: start: 20081115, end: 20081121
  18. EFFEXOR XR [Suspect]
     Indication: ANXIETY
     Dosage: 225 MG;QD 75 MG;BID 75 MG;QD
     Dates: start: 20081115, end: 20081121
  19. EFFEXOR XR [Suspect]
     Indication: DEPRESSION
     Dosage: 225 MG;QD 75 MG;BID 75 MG;QD
     Dates: start: 20080606, end: 20081106
  20. EFFEXOR XR [Suspect]
     Indication: ANXIETY
     Dosage: 225 MG;QD 75 MG;BID 75 MG;QD
     Dates: start: 20080606, end: 20081106

REACTIONS (16)
  - CEREBELLAR SYNDROME [None]
  - FALL [None]
  - SALIVARY HYPERSECRETION [None]
  - DYSARTHRIA [None]
  - SPEECH DISORDER [None]
  - APHASIA [None]
  - DYSPHAGIA [None]
  - ASTHENIA [None]
  - WEIGHT DECREASED [None]
  - MUSCLE SPASMS [None]
  - APATHY [None]
  - EYE MOVEMENT DISORDER [None]
  - CLUMSINESS [None]
  - BALANCE DISORDER [None]
  - GAIT DISTURBANCE [None]
  - COORDINATION ABNORMAL [None]
